FAERS Safety Report 5810905-2 (Version None)
Quarter: 2008Q3

REPORT INFORMATION
  Report Type: 
  Country: None (occurrence: None)
  Receive Date: 20080716
  Receipt Date: 20080704
  Transmission Date: 20090109
  Serious: Yes (Hospitalization)
  Sender: FDA-Public Use
  Company Number: PHHY2008CH12959

PATIENT
  Age: 70 Year
  Sex: Male

DRUGS (6)
  1. CLOZAPINE [Suspect]
     Indication: SCHIZOPHRENIA
     Dosage: 75 MG/DAY
  2. NEURONTIN [Concomitant]
     Indication: EXTRAPYRAMIDAL DISORDER
     Dosage: 100 MG/DAY
  3. CALCIMAGON-D3 [Concomitant]
     Dosage: 500 MG/DAY
     Dates: start: 20080412
  4. MG 5 - LONGORAL [Concomitant]
     Dosage: 1 DF/DAY
  5. DAFALGAN [Concomitant]
     Dosage: 1000 MG/DAY
  6. SEROQUEL [Concomitant]

REACTIONS (11)
  - BALANCE DISORDER [None]
  - CEREBRAL THROMBOSIS [None]
  - DYSKINESIA [None]
  - EXTRAPYRAMIDAL DISORDER [None]
  - FALL [None]
  - GAIT DISTURBANCE [None]
  - GENERAL PHYSICAL HEALTH DETERIORATION [None]
  - PSYCHIATRIC DECOMPENSATION [None]
  - PSYCHOTIC DISORDER [None]
  - PULMONARY EMBOLISM [None]
  - SPEECH DISORDER [None]
